FAERS Safety Report 8014170-X (Version None)
Quarter: 2011Q4

REPORT INFORMATION
  Report Type: 
  Country: None (occurrence: None)
  Receive Date: 20111227
  Receipt Date: 20111227
  Transmission Date: 20120403
  Serious: Yes (Other)
  Sender: FDA-Public Use
  Company Number: None

PATIENT
  Age: 87 Year
  Sex: Male
  Weight: 82 kg

DRUGS (2)
  1. COREG [Concomitant]
  2. AVEENO SKIN RELIEF BODY WASH FRAGRANCE FR [Suspect]
     Indication: THERAPEUTIC SKIN CARE TOPICAL
     Dosage: DOSE:UNK, ONCE TOPICALLY
     Route: 061

REACTIONS (1)
  - DYSPNOEA [None]
